FAERS Safety Report 4688240-8 (Version None)
Quarter: 2005Q2

REPORT INFORMATION
  Report Type: 
  Country: None (occurrence: None)
  Receive Date: 20050609
  Receipt Date: 20050527
  Transmission Date: 20051028
  Serious: Yes (Other)
  Sender: FDA-Public Use
  Company Number: 2005082597

PATIENT
  Sex: Female
  Weight: 68.0396 kg

DRUGS (10)
  1. SINEQUAN [Suspect]
     Indication: ILL-DEFINED DISORDER
     Dosage: ORAL
     Route: 048
     Dates: start: 20031001
  2. HUMIRA [Suspect]
     Indication: ANKYLOSING SPONDYLITIS
  3. LEVOTHROID [Concomitant]
  4. SPIRONOLACTONE [Concomitant]
  5. KLONOPIN [Concomitant]
  6. VICODIN (HYDROCHDONE BITARTRATE, PARACETAMOL) [Concomitant]
  7. ZETIA [Concomitant]
  8. DALMANE [Concomitant]
  9. VALIUM [Concomitant]
  10. XANAX [Concomitant]

REACTIONS (2)
  - ANKYLOSING SPONDYLITIS [None]
  - OESOPHAGEAL RUPTURE [None]
